FAERS Safety Report 5210108-9 (Version None)
Quarter: 2006Q4

REPORT INFORMATION
  Report Type: 
  Country: None (occurrence: None)
  Receive Date: 20061103
  Receipt Date: 20060720
  Transmission Date: 20070319
  Serious: No
  Sender: FDA-Public Use
  Company Number: FACT0600285

PATIENT
  Age: 45 Year
  Sex: Female
  Weight: 45.4 kg

DRUGS (3)
  1. FACTIVE [Suspect]
     Indication: RESPIRATORY TRACT INFECTION BACTERIAL
     Dosage: 320 MG, QD, ORAL
     Route: 048
     Dates: start: 20060607, end: 20060610
  2. OMNICEF [Suspect]
     Indication: SINUSITIS
     Dosage: 300MG, BID, ORAL
     Route: 048
     Dates: start: 20060524, end: 20060602
  3. RONDEC DM (CARBINOXAMINE MALEATE, DEXTROMETHORPHAN HYDROBROMIDE, PSEUD [Concomitant]

REACTIONS (2)
  - DYSGEUSIA [None]
  - PAIN IN EXTREMITY [None]
